FAERS Safety Report 9444685 (Version 1)
Quarter: 2013Q3

REPORT INFORMATION
  Report Type: Spontaneous
  Country: CN (occurrence: CN)
  Receive Date: 20130807
  Receipt Date: 20130807
  Transmission Date: 20140515
  Serious: Yes (Other)
  Sender: FDA-Public Use
  Company Number: CN-PFIZER INC-2013227915

PATIENT
  Age: 68 Year
  Sex: Female

DRUGS (2)
  1. PHARMORUBICIN [Suspect]
     Indication: BREAST CANCER
     Dosage: 90 MG, EVERY 14 DAYS
     Route: 041
     Dates: start: 20121112, end: 20121112
  2. DOCETAXEL [Concomitant]
     Indication: BREAST CANCER
     Dosage: UNK
     Dates: start: 20121112, end: 20121112

REACTIONS (3)
  - Bone marrow failure [Recovering/Resolving]
  - Pyrexia [Recovering/Resolving]
  - Oropharyngeal pain [Recovering/Resolving]
